FAERS Safety Report 11292865 (Version 2)
Quarter: 2015Q3

REPORT INFORMATION
  Report Type: Report from Study
  Country: US (occurrence: US)
  Receive Date: 20150722
  Receipt Date: 20150727
  Transmission Date: 20151125
  Serious: Yes (Other)
  Sender: FDA-Public Use
  Company Number: US-JNJFOC-20150709760

PATIENT
  Age: 53 Year
  Sex: Male
  Weight: 122.93 kg

DRUGS (1)
  1. INVOKANA [Suspect]
     Active Substance: CANAGLIFLOZIN
     Indication: DIABETES MELLITUS
     Route: 048
     Dates: start: 20150706

REACTIONS (7)
  - Thirst [Recovering/Resolving]
  - Drug ineffective [Unknown]
  - Abnormal loss of weight [Not Recovered/Not Resolved]
  - Pollakiuria [Recovering/Resolving]
  - Visual acuity reduced [Unknown]
  - Suicidal ideation [Unknown]
  - Depression [Unknown]

NARRATIVE: CASE EVENT DATE: 201507
